FAERS Safety Report 23647459 (Version 2)
Quarter: 2024Q1

REPORT INFORMATION
  Report Type: Spontaneous
  Country: EE (occurrence: None)
  Receive Date: 20240319
  Receipt Date: 20240320
  Transmission Date: 20240410
  Serious: Yes (Death)
  Sender: FDA-Public Use
  Company Number: EE-Unichem Pharmaceuticals (USA) Inc-UCM202403-000278

PATIENT
  Age: 65 Year
  Sex: Female

DRUGS (1)
  1. ALLOPURINOL [Suspect]
     Active Substance: ALLOPURINOL
     Indication: Hyperuricaemia
     Dosage: UNKNOWN

REACTIONS (4)
  - Infection [Fatal]
  - Renal failure [Fatal]
  - Toxic epidermal necrolysis [Fatal]
  - Condition aggravated [Fatal]
